FAERS Safety Report 6707315-2 (Version None)
Quarter: 2010Q2

REPORT INFORMATION
  Report Type: 
  Country: None (occurrence: None)
  Receive Date: 20100503
  Receipt Date: 20090902
  Transmission Date: 20101027
  Serious: No
  Sender: FDA-Public Use
  Company Number: US-ASTRAZENECA-2009SE09119

PATIENT
  Age: 64 Year
  Sex: Female
  Weight: 70.8 kg

DRUGS (3)
  1. NEXIUM [Suspect]
     Indication: OESOPHAGITIS
     Route: 048
     Dates: start: 20090815, end: 20090820
  2. SYNTHROID [Concomitant]
  3. EYE DROPS [Concomitant]
     Indication: GLAUCOMA

REACTIONS (4)
  - DIARRHOEA [None]
  - DYSGEUSIA [None]
  - MUSCLE SPASMS [None]
  - NAUSEA [None]
